FAERS Safety Report 8572253-X (Version None)
Quarter: 2012Q3

REPORT INFORMATION
  Report Type: 
  Country: None (occurrence: None)
  Receive Date: 20120806
  Receipt Date: 20120729
  Transmission Date: 20120928
  Serious: Yes (Other)
  Sender: FDA-Public Use
  Company Number: NL-PFIZER INC-2012185785

PATIENT
  Sex: Female

DRUGS (2)
  1. HYDROXYZINE [Suspect]
     Dosage: UNK
  2. PHENYTOIN [Suspect]
     Dosage: UNK

REACTIONS (1)
  - HYPOGAMMAGLOBULINAEMIA [None]
